FAERS Safety Report 7645610-3 (Version None)
Quarter: 2011Q3

REPORT INFORMATION
  Report Type: 
  Country: None (occurrence: None)
  Receive Date: 20110729
  Receipt Date: 20110722
  Transmission Date: 20111222
  Serious: Yes (Hospitalization, Other)
  Sender: FDA-Public Use
  Company Number: PHHY2011US66665

PATIENT
  Age: 37 Year
  Sex: Male

DRUGS (6)
  1. CALCIUM ACETATE [Concomitant]
     Dosage: 2001 MG, TID
  2. MULTI-VITAMINS [Concomitant]
     Dosage: 1 DF DAILY
  3. WARFARIN SODIUM [Suspect]
     Indication: ANTICOAGULANT THERAPY
     Dosage: UNK
     Route: 048
  4. WARFARIN SODIUM [Suspect]
     Dosage: 5 MG, UNK
  5. NIFEDIPINE [Concomitant]
     Dosage: 90 MG, UNK
  6. METOPROLOL TARTRATE [Concomitant]
     Dosage: 100 MG, BID

REACTIONS (11)
  - CALCIPHYLAXIS [None]
  - SKIN NECROSIS [None]
  - OEDEMA PERIPHERAL [None]
  - LUNG INFILTRATION [None]
  - DYSPNOEA [None]
  - CALCIFICATION METASTATIC [None]
  - RALES [None]
  - VASCULAR CALCIFICATION [None]
  - BLOOD PARATHYROID HORMONE INCREASED [None]
  - CELLULITIS [None]
  - PULMONARY OEDEMA [None]
